FAERS Safety Report 17691546 (Version 1)
Quarter: 2020Q2

REPORT INFORMATION
  Report Type: Spontaneous
  Country: US (occurrence: US)
  Receive Date: 20200422
  Receipt Date: 20200422
  Transmission Date: 20200714
  Serious: No
  Sender: FDA-Public Use
  Company Number: US-009507513-2004USA006254

PATIENT
  Age: 42 Year
  Sex: Male

DRUGS (1)
  1. PROVENTIL [Suspect]
     Active Substance: ALBUTEROL
     Indication: DYSPNOEA
     Dosage: TWO PUFFS EVERY 6 HOURS (Q6H)
     Dates: start: 20200328

REACTIONS (5)
  - Wrong technique in product usage process [Unknown]
  - Poor quality device used [Unknown]
  - Product dose omission [Unknown]
  - Dyspnoea [Unknown]
  - Product quality issue [Unknown]

NARRATIVE: CASE EVENT DATE: 202004
